FAERS Safety Report 9122896 (Version 1)
Quarter: 2013Q1

REPORT INFORMATION
  Report Type: Spontaneous
  Country: FR (occurrence: FR)
  Receive Date: 20130115
  Receipt Date: 20130115
  Transmission Date: 20140127
  Serious: Yes (Hospitalization)
  Sender: FDA-Public Use
  Company Number: FR-PFIZER INC-2013014730

PATIENT
  Age: 89 Year
  Sex: Female

DRUGS (1)
  1. CORDARONE [Suspect]
     Dosage: 200 MG ONCE DAILY (5 DAYS PER WEEK)
     Route: 048

REACTIONS (1)
  - Pemphigoid [Recovering/Resolving]
